FAERS Safety Report 5571018-0 (Version None)
Quarter: 2007Q4

REPORT INFORMATION
  Report Type: 
  Country: None (occurrence: None)
  Receive Date: 20071221
  Receipt Date: 20071213
  Transmission Date: 20080405
  Serious: Yes (Other)
  Sender: FDA-Public Use
  Company Number: DE-ABBOTT-07P-062-0429031-00

PATIENT
  Sex: Male
  Weight: 88 kg

DRUGS (5)
  1. FENOFIBRATE TABLETS 145MG [Suspect]
     Indication: DYSLIPIDAEMIA
     Route: 048
     Dates: start: 20070507, end: 20071118
  2. SIMVASTATIN [Concomitant]
     Indication: DYSLIPIDAEMIA
     Route: 048
     Dates: start: 20070711, end: 20071118
  3. HCTZ ASS [Concomitant]
     Indication: DRUG USE FOR UNKNOWN INDICATION
     Route: 048
     Dates: start: 20040101
  4. LERCANIDIPINE [Concomitant]
     Indication: DRUG USE FOR UNKNOWN INDICATION
     Route: 048
     Dates: start: 20030101
  5. PRITOR [Concomitant]
     Indication: DRUG USE FOR UNKNOWN INDICATION
     Dosage: 80 MG/ 25 MG
     Route: 048
     Dates: start: 19940101

REACTIONS (1)
  - HEPATIC ENZYME INCREASED [None]
